FAERS Safety Report 4513956-3 (Version None)
Quarter: 2004Q4

REPORT INFORMATION
  Report Type: 
  Country: None (occurrence: None)
  Receive Date: 20041130
  Receipt Date: 20041007
  Transmission Date: 20050328
  Serious: No
  Sender: FDA-Public Use
  Company Number: US-GLAXOSMITHKLINE-A0529024A

PATIENT
  Age: 50 Year
  Sex: Female

DRUGS (4)
  1. WELLBUTRIN XL [Suspect]
     Indication: DEPRESSION
     Dosage: 300MG PER DAY
     Route: 048
     Dates: start: 20040825, end: 20040915
  2. UNKNOWN MEDICATION [Concomitant]
  3. ACTIVELLA [Concomitant]
  4. TRAZODONE HCL [Concomitant]

REACTIONS (2)
  - ANXIETY [None]
  - DEPRESSION [None]
